FAERS Safety Report 10698748 (Version 1)
Quarter: 2015Q1

REPORT INFORMATION
  Report Type: Spontaneous
  Country: US (occurrence: US)
  Receive Date: 20150108
  Receipt Date: 20150108
  Transmission Date: 20150721
  Serious: No
  Sender: FDA-Public Use
  Company Number: US-GLAXOSMITHKLINE-US2014GSK045827

PATIENT
  Sex: Male

DRUGS (1)
  1. ARZERRA [Suspect]
     Active Substance: OFATUMUMAB
     Indication: LEUKAEMIA
     Dosage: 2000 MG, U
     Route: 042
     Dates: start: 20140911, end: 20140911

REACTIONS (2)
  - Intercepted drug prescribing error [Recovered/Resolved]
  - Therapy cessation [Unknown]
